FAERS Safety Report 16883584 (Version 4)
Quarter: 2023Q4

REPORT INFORMATION
  Report Type: Spontaneous
  Country: US (occurrence: US)
  Receive Date: 20191004
  Receipt Date: 20231123
  Transmission Date: 20240110
  Serious: Yes (Death, Hospitalization, Other)
  Sender: FDA-Public Use
  Company Number: US-TEVA-2019-US-1117958

PATIENT
  Age: 80 Year
  Sex: Female

DRUGS (10)
  1. HYDROCHLOROTHIAZIDE\VALSARTAN [Suspect]
     Active Substance: HYDROCHLOROTHIAZIDE\VALSARTAN
     Indication: Hypertension
     Dosage: 80-12.5 MG
     Route: 048
     Dates: start: 20150108, end: 20150205
  2. HYDROCHLOROTHIAZIDE\VALSARTAN [Suspect]
     Active Substance: HYDROCHLOROTHIAZIDE\VALSARTAN
     Dosage: 80-12.5 MG
     Route: 048
     Dates: start: 20150506, end: 20150803
  3. HYDROCHLOROTHIAZIDE\VALSARTAN [Suspect]
     Active Substance: HYDROCHLOROTHIAZIDE\VALSARTAN
     Indication: Hypertension
     Dosage: 80-12.5 MG
     Route: 048
     Dates: start: 20150205, end: 20160506
  4. HYDROCHLOROTHIAZIDE\VALSARTAN [Suspect]
     Active Substance: HYDROCHLOROTHIAZIDE\VALSARTAN
     Dosage: 80-12.5 MG
     Route: 048
     Dates: start: 20150803, end: 20160404
  5. HYDROCHLOROTHIAZIDE\VALSARTAN [Suspect]
     Active Substance: HYDROCHLOROTHIAZIDE\VALSARTAN
     Indication: Hypertension
     Dosage: 80-12.5 MG
     Route: 048
     Dates: start: 20160809, end: 20161107
  6. HYDROCHLOROTHIAZIDE\VALSARTAN [Suspect]
     Active Substance: HYDROCHLOROTHIAZIDE\VALSARTAN
     Indication: Hypertension
     Dosage: 80-12.5 MG
     Route: 048
     Dates: start: 20161107, end: 20171123
  7. HYDROCHLOROTHIAZIDE\VALSARTAN [Suspect]
     Active Substance: HYDROCHLOROTHIAZIDE\VALSARTAN
     Dosage: 80-12.5 MG
     Route: 048
     Dates: start: 20180927, end: 20181226
  8. HYDROCHLOROTHIAZIDE\VALSARTAN [Suspect]
     Active Substance: HYDROCHLOROTHIAZIDE\VALSARTAN
     Indication: Hypertension
     Dosage: 80-12.5 MG
     Route: 048
     Dates: start: 20171211, end: 20180518
  9. HYDROCHLOROTHIAZIDE\VALSARTAN [Suspect]
     Active Substance: HYDROCHLOROTHIAZIDE\VALSARTAN
     Indication: Hypertension
     Dosage: 80-12.5 MG
     Route: 048
     Dates: start: 20180622, end: 20180920
  10. HYDROCHLOROTHIAZIDE\LOSARTAN POTASSIUM [Suspect]
     Active Substance: HYDROCHLOROTHIAZIDE\LOSARTAN POTASSIUM
     Indication: Hypertension
     Dosage: 100-12.5 MG
     Route: 065
     Dates: start: 20190220, end: 20190322

REACTIONS (11)
  - Acute myeloid leukaemia [Fatal]
  - Anaemia [Unknown]
  - Thrombocytopenia [Unknown]
  - Malignant peritoneal neoplasm [Unknown]
  - Mesenteric neoplasm [Unknown]
  - Malignant neoplasm of uterine adnexa [Unknown]
  - Fallopian tube cancer [Unknown]
  - Carcinoid tumour of the small bowel [Unknown]
  - Retroperitoneal cancer [Unknown]
  - Ascites [Unknown]
  - Ovarian cancer [Unknown]

NARRATIVE: CASE EVENT DATE: 20180512
